FAERS Safety Report 12640162 (Version 1)
Quarter: 2016Q3

REPORT INFORMATION
  Report Type: Spontaneous
  Country: US (occurrence: US)
  Receive Date: 20160810
  Receipt Date: 20160810
  Transmission Date: 20161109
  Serious: No
  Sender: FDA-Public Use
  Company Number: US-B.I. PHARMACEUTICALS,INC./RIDGEFIELD-2016-BI-49732BP

PATIENT
  Age: 84 Year
  Sex: Female

DRUGS (8)
  1. PROBIOTICS [Concomitant]
     Active Substance: PROBIOTICS NOS
     Indication: PRODUCT USED FOR UNKNOWN INDICATION
     Route: 065
  2. GAVISCON [Concomitant]
     Active Substance: ALUMINUM HYDROXIDE\MAGNESIUM CARBONATE
     Indication: GASTROOESOPHAGEAL REFLUX DISEASE
     Route: 065
  3. TUMS [Concomitant]
     Active Substance: CALCIUM CARBONATE
     Indication: GASTROOESOPHAGEAL REFLUX DISEASE
     Route: 065
  4. ZEGERID [Concomitant]
     Active Substance: OMEPRAZOLE\SODIUM BICARBONATE
     Indication: GASTROOESOPHAGEAL REFLUX DISEASE
     Route: 065
  5. MYLANTA [Concomitant]
     Active Substance: ALUMINUM HYDROXIDE\DIMETHICONE\MAGNESIUM HYDROXIDE
     Indication: GASTROOESOPHAGEAL REFLUX DISEASE
     Route: 065
  6. ATENOLOL. [Concomitant]
     Active Substance: ATENOLOL
     Indication: HYPERTENSION
     Dosage: 2 NR
     Route: 065
  7. ALPRAZOLAM. [Concomitant]
     Active Substance: ALPRAZOLAM
     Indication: ANXIETY
     Dosage: 1 NR
     Route: 065
  8. ZANTAC [Suspect]
     Active Substance: RANITIDINE HYDROCHLORIDE
     Indication: GASTROOESOPHAGEAL REFLUX DISEASE
     Dosage: 150 MG
     Route: 048
     Dates: start: 201605

REACTIONS (3)
  - Medication error [Not Recovered/Not Resolved]
  - Oesophageal pain [Recovered/Resolved]
  - Off label use [Not Recovered/Not Resolved]

NARRATIVE: CASE EVENT DATE: 201605
